FAERS Safety Report 22393010 (Version 1)
Quarter: 2023Q2

REPORT INFORMATION
  Report Type: Spontaneous
  Country: US (occurrence: US)
  Receive Date: 20230601
  Receipt Date: 20230601
  Transmission Date: 20230722
  Serious: No
  Sender: FDA-Public Use
  Company Number: US-GALDERMA-US2023007901

PATIENT

DRUGS (9)
  1. PROACTIV MD ADAPALENE ACNE TREATMENT [Suspect]
     Active Substance: ADAPALENE
     Indication: Acne
     Dosage: 1 DOSAGE FORM, QD, ONCE A DAY
     Route: 061
     Dates: start: 2022, end: 202303
  2. Proactiv MD Ultra Gentle Cleanser [Concomitant]
     Indication: Acne
     Dosage: 1 DOSAGE FORM, BID, 2 OR MORE TIMES A DAY, PEA SIZE
     Route: 061
     Dates: start: 2022
  3. Proactiv MD Ultra Gentle Cleanser [Concomitant]
     Dosage: 1 DOSAGE FORM, QD, ONCE A DAY
     Route: 061
     Dates: end: 202303
  4. Proactiv MD Ultra Hydrating Moisturizer [Concomitant]
     Indication: Acne
     Dosage: 1 DOSAGE FORM, BID, 2 OR MORE TIMES A DAY, PEA SIZE
     Route: 061
     Dates: start: 2022
  5. Proactiv MD Ultra Hydrating Moisturizer [Concomitant]
     Dosage: 1 DOSAGE FORM, QD, ONCE A DAY
     Route: 061
     Dates: end: 202303
  6. Proactiv Post Acne Dark Mark Relief [Concomitant]
     Indication: Acne
     Dosage: 1 DOSAGE FORM, BID, 2 OR MORE TIMES A DAY, PEA SIZE
     Route: 061
     Dates: start: 2022
  7. Proactiv Post Acne Dark Mark Relief [Concomitant]
     Dosage: 1 DOSAGE FORM, QD, ONCE A DAY
     Route: 061
     Dates: end: 202303
  8. Proactiv Post Acne Scar Gel [Concomitant]
     Indication: Acne
     Dosage: 1 DOSAGE FORM, BID, 2 OR MORE TIMES A DAY, PEA SIZE
     Route: 061
     Dates: start: 2022, end: 202303
  9. Proactiv Post Acne Scar Gel [Concomitant]
     Dosage: 1 DOSAGE FORM, QD, ONCE A DAY
     Route: 061

REACTIONS (2)
  - Acne [Recovering/Resolving]
  - Dry skin [Recovering/Resolving]

NARRATIVE: CASE EVENT DATE: 20220101
